FAERS Safety Report 23150825 (Version 1)
Quarter: 2023Q4

REPORT INFORMATION
  Report Type: Spontaneous
  Country: JP (occurrence: JP)
  Receive Date: 20231106
  Receipt Date: 20231106
  Transmission Date: 20240110
  Serious: Yes (Other)
  Sender: FDA-Public Use
  Company Number: JP-002147023-NVSJ2023JP015873

PATIENT
  Age: 72 Year
  Sex: Male

DRUGS (1)
  1. EVEROLIMUS [Suspect]
     Active Substance: EVEROLIMUS
     Indication: Pancreatic neuroendocrine tumour metastatic
     Dosage: 10 MG/DAY IN CYCLES OF 2 WEEKS ON AND THEN 1 WEEK OFF
     Route: 065

REACTIONS (3)
  - Nephrotic syndrome [Recovering/Resolving]
  - Metastases to liver [Unknown]
  - Malignant neoplasm progression [Unknown]
